FAERS Safety Report 10566675 (Version 5)
Quarter: 2015Q3

REPORT INFORMATION
  Report Type: Spontaneous
  Country: US (occurrence: US)
  Receive Date: 20141105
  Receipt Date: 20150914
  Transmission Date: 20151125
  Serious: No
  Sender: FDA-Public Use
  Company Number: US-GLAXOSMITHKLINE-A1089282A

PATIENT
  Age: 79 Year
  Sex: Female

DRUGS (7)
  1. PROMACTA [Suspect]
     Active Substance: ELTROMBOPAG OLAMINE
     Indication: IMMUNE THROMBOCYTOPENIC PURPURA
     Dosage: 12.5 MG, UNK
     Dates: start: 20140920
  2. SPIRONOLACTONE. [Concomitant]
     Active Substance: SPIRONOLACTONE
  3. PROMACTA [Suspect]
     Active Substance: ELTROMBOPAG OLAMINE
     Indication: PLATELET COUNT DECREASED
     Dosage: 50 MG, U
     Route: 065
     Dates: start: 20130708
  4. ATENOLOL. [Concomitant]
     Active Substance: ATENOLOL
  5. PROMACTA [Suspect]
     Active Substance: ELTROMBOPAG OLAMINE
     Dosage: 50 MG, QD
     Route: 048
     Dates: start: 201506
  6. LEXAPRO [Concomitant]
     Active Substance: ESCITALOPRAM OXALATE
  7. MOBIC [Concomitant]
     Active Substance: MELOXICAM

REACTIONS (6)
  - Platelet count decreased [Unknown]
  - Malaise [Unknown]
  - Osteopenia [Unknown]
  - VIIth nerve paralysis [Unknown]
  - Platelet count increased [Unknown]
  - Viral infection [Unknown]

NARRATIVE: CASE EVENT DATE: 201409
